FAERS Safety Report 8199678-9 (Version None)
Quarter: 2012Q1

REPORT INFORMATION
  Report Type: 
  Country: None (occurrence: None)
  Receive Date: 20120311
  Receipt Date: 20120229
  Transmission Date: 20120608
  Serious: Yes (Hospitalization)
  Sender: FDA-Public Use
  Company Number: BR-ASTRAZENECA-2011SE72749

PATIENT
  Age: 59 Year
  Sex: Male
  Weight: 85 kg

DRUGS (3)
  1. BRILINTA [Suspect]
     Indication: ANGINA PECTORIS
     Route: 048
     Dates: start: 20111101
  2. CRESTOR [Suspect]
     Indication: HYPERCHOLESTEROLAEMIA
     Route: 048
     Dates: start: 20101101, end: 20120201
  3. ATACAND HCT [Suspect]
     Indication: HYPERTENSION
     Dosage: 16 + 2.5 MG DAILY
     Route: 048
     Dates: start: 20101101

REACTIONS (2)
  - ANGINA PECTORIS [None]
  - DRUG INEFFECTIVE FOR UNAPPROVED INDICATION [None]
